FAERS Safety Report 4986371-6 (Version None)
Quarter: 2006Q2

REPORT INFORMATION
  Report Type: 
  Country: None (occurrence: None)
  Receive Date: 20060428
  Receipt Date: 20060406
  Transmission Date: 20061013
  Serious: Yes (Other)
  Sender: FDA-Public Use
  Company Number: 2006JP000898

PATIENT
  Age: 24 Year
  Sex: Male

DRUGS (1)
  1. CEFAZOLIN [Suspect]
     Dosage: 1G PER DAY
     Route: 042
     Dates: start: 20051228, end: 20051228

REACTIONS (3)
  - ANAPHYLACTIC SHOCK [None]
  - BLOOD PRESSURE DECREASED [None]
  - FLUSHING [None]
